FAERS Safety Report 9840614 (Version 3)
Quarter: 2014Q2

REPORT INFORMATION
  Report Type: Report from Study
  Country: CA (occurrence: CA)
  Receive Date: 20140124
  Receipt Date: 20140418
  Transmission Date: 20141212
  Serious: Yes (Other)
  Sender: FDA-Public Use
  Company Number: CA-UCBSA-109504

PATIENT
  Age: 48 Year
  Sex: Male
  Weight: 89.7 kg

DRUGS (2)
  1. CERTOLIZUMAB PEGOL [Suspect]
     Indication: CROHN^S DISEASE
     Dosage: 400 MG ; WEEK 234
     Route: 058
     Dates: start: 20090624
  2. CLINDAMYCIN [Concomitant]
     Indication: CELLULITIS
     Dates: start: 20131204

REACTIONS (1)
  - Cellulitis [Recovered/Resolved]
